FAERS Safety Report 17578256 (Version 1)
Quarter: 2020Q1

REPORT INFORMATION
  Report Type: Spontaneous
  Country: US (occurrence: US)
  Receive Date: 20200324
  Receipt Date: 20200324
  Transmission Date: 20200409
  Serious: Yes (Disabling, Other)
  Sender: FDA-Public Use
  Company Number: US-MYLANLABS-2020M1031765

PATIENT
  Age: 65 Year
  Sex: Male

DRUGS (4)
  1. CLINDAMYCIN. [Concomitant]
     Active Substance: CLINDAMYCIN
     Indication: CELLULITIS
     Dosage: UNK
     Route: 065
     Dates: start: 201704
  2. CLARITHROMYCIN. [Concomitant]
     Active Substance: CLARITHROMYCIN
     Indication: PRODUCT USED FOR UNKNOWN INDICATION
     Dosage: 500 MILLIGRAM
     Route: 048
  3. TOBRAMYCIN. [Suspect]
     Active Substance: TOBRAMYCIN
     Indication: INFECTIVE TENOSYNOVITIS
     Dosage: 300 MILLIGRAM
     Route: 042
     Dates: start: 201705
  4. TOBRAMYCIN. [Suspect]
     Active Substance: TOBRAMYCIN
     Indication: MYCOBACTERIUM CHELONAE INFECTION

REACTIONS (5)
  - Balance disorder [Recovering/Resolving]
  - Tinnitus [Unknown]
  - Ototoxicity [Unknown]
  - Vestibular disorder [Recovering/Resolving]
  - Deafness neurosensory [Unknown]
